FAERS Safety Report 23267047 (Version 3)
Quarter: 2023Q4

REPORT INFORMATION
  Report Type: Spontaneous
  Country: KR (occurrence: KR)
  Receive Date: 20231206
  Receipt Date: 20231222
  Transmission Date: 20240109
  Serious: No
  Sender: FDA-Public Use
  Company Number: KR-PFIZER INC-PV202300187625

PATIENT
  Age: 12 Year
  Sex: Male

DRUGS (1)
  1. GENOTROPIN [Suspect]
     Active Substance: SOMATROPIN
     Indication: Short stature
     Dosage: 8 IU * 5,6,6,6
     Dates: start: 20230310

REACTIONS (2)
  - Device leakage [Unknown]
  - Poor quality device used [Unknown]
